FAERS Safety Report 7527507 (Version 4)
Quarter: 2013Q1

REPORT INFORMATION
  Report Type: Spontaneous
  Country: MX (occurrence: MX)
  Receive Date: 20100804
  Receipt Date: 20130326
  Transmission Date: 20140127
  Serious: Yes (Other)
  Sender: FDA-Public Use
  Company Number: PHHY2010MX48374

PATIENT
  Age: 75 Year
  Sex: Male

DRUGS (4)
  1. EXFORGE [Suspect]
     Indication: HYPERTENSION
     Dosage: 1 DF, 1 TABLET (160 MG VALS AND 10 MG AMLO) DAILY
     Route: 048
     Dates: start: 20081101, end: 201010
  2. ACCUPRIL [Concomitant]
  3. LOPRESSOR [Concomitant]
  4. ASPIRIN PROTECT [Concomitant]
     Indication: CEREBROVASCULAR ACCIDENT

REACTIONS (5)
  - Lung disorder [Not Recovered/Not Resolved]
  - Infarction [Recovering/Resolving]
  - Ear disorder [Not Recovered/Not Resolved]
  - Hypertension [Recovering/Resolving]
  - Asthenia [Recovered/Resolved]
